FAERS Safety Report 8890268 (Version 2)
Quarter: 2012Q4

REPORT INFORMATION
  Report Type: 
  Country: JP (occurrence: JP)
  Receive Date: 20121107
  Receipt Date: 20121227
  Transmission Date: 20130627
  Serious: Yes (Death, Life-Threatening, Hospitalization, Disabling, Other)
  Sender: FDA-Public Use
  Company Number: JP-PFIZER INC-2012275244

PATIENT
  Age: 74 Year
  Sex: Male

DRUGS (1)
  1. SUTENT [Suspect]
     Indication: RENAL CANCER
     Dosage: 25 mg, 1x/day
     Route: 048
     Dates: start: 20120924, end: 20121011

REACTIONS (5)
  - Disseminated intravascular coagulation [Fatal]
  - Disease progression [Fatal]
  - Renal cancer [Fatal]
  - Hepatic function abnormal [Not Recovered/Not Resolved]
  - Hyponatraemia [Not Recovered/Not Resolved]
